FAERS Safety Report 7642707-9 (Version None)
Quarter: 2011Q3

REPORT INFORMATION
  Report Type: 
  Country: None (occurrence: None)
  Receive Date: 20110728
  Receipt Date: 20110725
  Transmission Date: 20111222
  Serious: No
  Sender: FDA-Public Use
  Company Number: US-PFIZER INC-2011169497

PATIENT
  Sex: Female
  Weight: 68.027 kg

DRUGS (4)
  1. ATROPINE [Concomitant]
     Indication: GLAUCOMA
     Dosage: UNK, DAILY
  2. AROMASIN [Suspect]
     Dosage: 25 MG, DAILY
     Dates: start: 20110601
  3. AROMASIN [Suspect]
     Indication: BREAST CANCER
     Dosage: 25 MG, DAILY
     Route: 048
     Dates: start: 20080601, end: 20110101
  4. EXEMESTANE [Suspect]
     Indication: BREAST CANCER
     Dosage: 25 MG, DAILY
     Dates: start: 20110501, end: 20110601

REACTIONS (5)
  - BONE PAIN [None]
  - HOT FLUSH [None]
  - FATIGUE [None]
  - HEADACHE [None]
  - WEIGHT INCREASED [None]
